FAERS Safety Report 12170528 (Version 1)
Quarter: 2016Q1

REPORT INFORMATION
  Report Type: Spontaneous
  Country: US (occurrence: None)
  Receive Date: 20160310
  Receipt Date: 20160310
  Transmission Date: 20160526
  Serious: Yes (Life-Threatening)
  Sender: FDA-Public Use
  Company Number: None

PATIENT

DRUGS (1)
  1. ROBITUSSIN (GUAIFENESIN) [Suspect]
     Active Substance: GUAIFENESIN

REACTIONS (4)
  - Tremor [None]
  - Dyskinesia [None]
  - Drug abuse [None]
  - Hallucination [None]

NARRATIVE: CASE EVENT DATE: 20160306
